FAERS Safety Report 24322813 (Version 1)
Quarter: 2024Q3

REPORT INFORMATION
  Report Type: Spontaneous
  Country: US (occurrence: US)
  Receive Date: 20240916
  Receipt Date: 20240916
  Transmission Date: 20241017
  Serious: No
  Sender: SANOFI AVENTIS
  Company Number: US-SA-2024SA267059

PATIENT
  Age: 65 Year

DRUGS (1)
  1. LOVENOX [Suspect]
     Active Substance: ENOXAPARIN SODIUM
     Indication: Septic pulmonary embolism
     Dosage: 120MG, BID (2 TIMES EVERY DAY)
     Route: 058

REACTIONS (1)
  - Off label use [Unknown]
